FAERS Safety Report 15627402 (Version 1)
Quarter: 2018Q4

REPORT INFORMATION
  Report Type: Spontaneous
  Country: FR (occurrence: FR)
  Receive Date: 20181116
  Receipt Date: 20181116
  Transmission Date: 20190205
  Serious: Yes (Other)
  Sender: FDA-Public Use
  Company Number: FR-ALLERGAN-1853651US

PATIENT
  Age: 19 Year
  Sex: Male

DRUGS (12)
  1. PIPERACILLINE / TAZOBACTAM MYLAN [Suspect]
     Active Substance: PIPERACILLIN SODIUM\TAZOBACTAM SODIUM
     Indication: LUNG DISORDER
     Dosage: UNK UNK, SINGLE
     Route: 042
     Dates: start: 20181013, end: 20181016
  2. PARACETAMOL [Suspect]
     Active Substance: ACETAMINOPHEN
     Indication: GAIT DISTURBANCE
     Dosage: UNK UNK, SINGLE
     Route: 042
     Dates: start: 20181011, end: 20181015
  3. SUFENTANIL [Suspect]
     Active Substance: SUFENTANIL
     Indication: SEDATION
     Dosage: UNK UNK, SINGLE
     Route: 042
     Dates: start: 20081011, end: 20181011
  4. KETAMINE HYDROCHLORIDE. [Suspect]
     Active Substance: KETAMINE HYDROCHLORIDE
     Indication: SEDATION
     Dosage: UNK UNK, SINGLE
     Route: 042
     Dates: start: 20181013, end: 20181013
  5. PANTOPRAZOLE SODIUM. [Suspect]
     Active Substance: PANTOPRAZOLE SODIUM
     Dosage: UNK UNK, SINGLE
     Route: 042
  6. SUCRALFATE - BP [Suspect]
     Active Substance: SUCRALFATE
     Indication: PROPHYLAXIS AGAINST GASTROINTESTINAL ULCER
     Dosage: UNK, UNKNOWN
     Route: 048
     Dates: start: 20181013, end: 20181013
  7. ORBENINE [Suspect]
     Active Substance: CLOXACILLIN SODIUM
     Indication: LUNG DISORDER
     Dosage: UNK UNK, SINGLE
     Route: 042
     Dates: start: 20181009, end: 20181013
  8. MIDAZOLAM [Suspect]
     Active Substance: MIDAZOLAM HYDROCHLORIDE
     Indication: SEDATION
     Dosage: UNK UNK, SINGLE
     Route: 042
     Dates: start: 20181011, end: 20181011
  9. TERCIAN [Suspect]
     Active Substance: CYAMEMAZINE
     Indication: AGITATION
     Dosage: UNK UNK, UNKNOWN
     Route: 048
     Dates: start: 20181012, end: 20181015
  10. SERESTA [Suspect]
     Active Substance: OXAZEPAM
     Indication: AGITATION
     Dosage: UNK UNK, UNKNOWN
     Route: 048
     Dates: start: 20181012, end: 20181015
  11. PANTOPRAZOLE SODIUM. [Suspect]
     Active Substance: PANTOPRAZOLE SODIUM
     Indication: PROPHYLAXIS AGAINST GASTROINTESTINAL ULCER
     Dosage: UNK UNK, SINGLE
     Route: 042
     Dates: start: 20181016, end: 20181016
  12. PROPOFOL. [Suspect]
     Active Substance: PROPOFOL
     Indication: SEDATION
     Dosage: UNK UNK, SINGLE
     Route: 042
     Dates: start: 20181012, end: 20181012

REACTIONS (1)
  - Hepatitis [Recovering/Resolving]

NARRATIVE: CASE EVENT DATE: 20181016
